FAERS Safety Report 13071409 (Version 1)
Quarter: 2016Q4

REPORT INFORMATION
  Report Type: Spontaneous
  Country: CA (occurrence: CA)
  Receive Date: 20161229
  Receipt Date: 20161229
  Transmission Date: 20170207
  Serious: Yes (Other)
  Sender: FDA-Public Use
  Company Number: CA-TEVA-723131ACC

PATIENT
  Age: 50 Year
  Sex: Female

DRUGS (1)
  1. AMOXICILLIN. [Suspect]
     Active Substance: AMOXICILLIN
     Indication: PROPHYLAXIS
     Dosage: 4 TABLETS. 1 HOUR BEFORE DENTAL PROCEDURE. STRENGTH: 250MG

REACTIONS (4)
  - Hypersensitivity [Unknown]
  - Throat tightness [Unknown]
  - Urticaria [Unknown]
  - Dysphagia [Unknown]
